FAERS Safety Report 4830828-5 (Version None)
Quarter: 2005Q4

REPORT INFORMATION
  Report Type: 
  Country: None (occurrence: None)
  Receive Date: 20051114
  Receipt Date: 20051028
  Transmission Date: 20060501
  Serious: Yes (Death, Life-Threatening)
  Sender: FDA-Public Use
  Company Number: ADE05001-L

PATIENT
  Age: 60 Year

DRUGS (3)
  1. CYCLOSPORINE [Suspect]
     Indication: IMMUNE SYSTEM DISORDER
     Dosage: 2.5 - 3 MG/KG
  2. INFLIXIMAB [Concomitant]
  3. METHOTREXATE [Concomitant]

REACTIONS (1)
  - CEREBROVASCULAR ACCIDENT [None]
